FAERS Safety Report 22773140 (Version 3)
Quarter: 2024Q1

REPORT INFORMATION
  Report Type: Spontaneous
  Country: US (occurrence: US)
  Receive Date: 20230801
  Receipt Date: 20240214
  Transmission Date: 20240410
  Serious: No
  Sender: FDA-Public Use
  Company Number: US-SA-SAC20230725001521

PATIENT

DRUGS (2)
  1. LARONIDASE [Suspect]
     Active Substance: LARONIDASE
     Indication: Mucopolysaccharidosis I
     Dosage: 11.6 (UNITS NOT GIVEN), QW
     Route: 042
     Dates: start: 20230302
  2. LARONIDASE [Suspect]
     Active Substance: LARONIDASE
     Dosage: 11.6 (UNITS NOT GIVEN), QW
     Route: 042
     Dates: start: 2023

REACTIONS (6)
  - Magnetic resonance imaging head abnormal [Recovering/Resolving]
  - Pain in extremity [Recovering/Resolving]
  - Arthralgia [Recovering/Resolving]
  - Carpal tunnel syndrome [Not Recovered/Not Resolved]
  - Ear infection [Recovered/Resolved]
  - Pyrexia [Recovered/Resolved]

NARRATIVE: CASE EVENT DATE: 20230101
